FAERS Safety Report 6158970-X (Version None)
Quarter: 2009Q2

REPORT INFORMATION
  Report Type: 
  Country: None (occurrence: None)
  Receive Date: 20090417
  Receipt Date: 20090407
  Transmission Date: 20091009
  Serious: Yes (Hospitalization)
  Sender: FDA-Public Use
  Company Number: FR-PFIZER INC-2009194093

PATIENT

DRUGS (2)
  1. CELEBREX [Suspect]
     Indication: OSTEOARTHRITIS
     Dosage: 1 DF, 1X/DAY
     Route: 048
     Dates: start: 20080819, end: 20080919
  2. OMEPRAZOLE [Suspect]
     Indication: GASTROINTESTINAL EROSION
     Dosage: 10 MG, 1X/DAY
     Route: 048
     Dates: start: 20080702

REACTIONS (3)
  - DERMATITIS EXFOLIATIVE [None]
  - DERMATOMYOSITIS [None]
  - PRURITUS [None]
